FAERS Safety Report 7978864-4 (Version None)
Quarter: 2011Q4

REPORT INFORMATION
  Report Type: 
  Country: None (occurrence: None)
  Receive Date: 20111214
  Receipt Date: 20111208
  Transmission Date: 20120403
  Serious: Yes (Other)
  Sender: FDA-Public Use
  Company Number: JP-BRISTOL-MYERS SQUIBB COMPANY-16256323

PATIENT
  Age: 7 Decade
  Sex: Male

DRUGS (4)
  1. LEUCOVORIN CALCIUM [Suspect]
     Route: 041
  2. FLUOROURACIL [Suspect]
     Route: 041
  3. OXALIPLATIN [Suspect]
     Dosage: DRUG DISCONTINUED
     Route: 041
  4. ERBITUX [Suspect]
     Dosage: THERAPY DATE:8DEC11
     Route: 041
     Dates: start: 20110630

REACTIONS (1)
  - ANGINA PECTORIS [None]
